FAERS Safety Report 25610980 (Version 2)
Quarter: 2025Q3

REPORT INFORMATION
  Report Type: Spontaneous
  Country: CO (occurrence: CO)
  Receive Date: 20250728
  Receipt Date: 20250804
  Transmission Date: 20251021
  Serious: Yes (Death, Hospitalization, Other)
  Sender: SANOFI AVENTIS
  Company Number: CO-SANOFI-02598857

PATIENT
  Age: 15 Year
  Sex: Male
  Weight: 84 kg

DRUGS (1)
  1. RASBURICASE [Suspect]
     Active Substance: RASBURICASE
     Indication: Hyperuricaemia
     Route: 042
     Dates: start: 20250127, end: 20250127

REACTIONS (8)
  - Acute lymphocytic leukaemia recurrent [Fatal]
  - Hypoxia [Recovered/Resolved]
  - Bone marrow transplant [Unknown]
  - Methaemoglobinaemia [Recovered/Resolved]
  - Respiratory distress [Unknown]
  - Oliguria [Recovered/Resolved]
  - Pica [Unknown]
  - Haematuria [Recovered/Resolved]

NARRATIVE: CASE EVENT DATE: 20250127
